FAERS Safety Report 5520865-X (Version None)
Quarter: 2007Q4

REPORT INFORMATION
  Report Type: 
  Country: None (occurrence: None)
  Receive Date: 20071119
  Receipt Date: 20071116
  Transmission Date: 20080405
  Serious: Yes (Disabling)
  Sender: FDA-Public Use
  Company Number: B0493694A

PATIENT
  Age: 52 Year
  Sex: Female

DRUGS (7)
  1. FLUTIDE DISKUS [Suspect]
     Indication: ASTHMA
     Dosage: 100MCG TWICE PER DAY
     Route: 055
     Dates: start: 20070725
  2. HOKUNALIN [Concomitant]
     Route: 062
  3. MUCODYNE [Concomitant]
     Route: 048
  4. SOLANAX [Concomitant]
     Route: 048
  5. SINGULAIR [Concomitant]
     Route: 048
  6. MEDICON [Concomitant]
     Route: 048
  7. THEO-DUR [Concomitant]
     Route: 048

REACTIONS (2)
  - CATARACT [None]
  - VISUAL ACUITY REDUCED [None]
